FAERS Safety Report 4879717-0 (Version None)
Quarter: 2006Q1

REPORT INFORMATION
  Report Type: 
  Country: None (occurrence: None)
  Receive Date: 20060113
  Receipt Date: 20040310
  Transmission Date: 20060701
  Serious: Yes (Hospitalization, Congenital Anomaly)
  Sender: FDA-Public Use
  Company Number: 2004CG00506

PATIENT
  Age: 29 Year
  Sex: Female

DRUGS (9)
  1. ZOMIG [Suspect]
     Indication: MIGRAINE
     Route: 048
  2. AVLOCARDYL [Suspect]
  3. TAREG [Suspect]
     Indication: HYPERTENSION
     Route: 048
     Dates: start: 20030315, end: 20040114
  4. NEORECORMON [Suspect]
  5. BUMETANIDE [Suspect]
     Route: 048
  6. PROGRAF [Suspect]
     Route: 048
  7. ATARAX [Suspect]
  8. EFFERALGAN [Suspect]
  9. SPECIAFOLDINE [Suspect]
     Indication: HYPERHOMOCYSTEINAEMIA
     Dates: start: 20030601

REACTIONS (6)
  - ABORTION INDUCED [None]
  - DRUG EXPOSURE DURING PREGNANCY [None]
  - FOETAL GROWTH RETARDATION [None]
  - FOETAL MOVEMENTS DECREASED [None]
  - OLIGOHYDRAMNIOS [None]
  - ULTRASOUND ANTENATAL SCREEN ABNORMAL [None]
